FAERS Safety Report 23124465 (Version 7)
Quarter: 2025Q3

REPORT INFORMATION
  Report Type: Report from Study
  Country: CN (occurrence: CN)
  Receive Date: 20231030
  Receipt Date: 20250820
  Transmission Date: 20251020
  Serious: Yes (Hospitalization, Other)
  Sender: EISAI
  Company Number: CN-Eisai-EC-2023-151215

PATIENT
  Age: 55 Year
  Sex: Female
  Weight: 56 kg

DRUGS (19)
  1. LENVATINIB [Suspect]
     Active Substance: LENVATINIB
     Indication: Hepatocellular carcinoma
     Dates: start: 20230808, end: 202308
  2. LENVATINIB [Suspect]
     Active Substance: LENVATINIB
     Dates: start: 20230823, end: 20230919
  3. DURVALUMAB [Suspect]
     Active Substance: DURVALUMAB
     Indication: Hepatocellular carcinoma
     Dates: start: 20230823, end: 20230923
  4. TREMELIMUMAB [Suspect]
     Active Substance: TREMELIMUMAB
     Indication: Hepatocellular carcinoma
     Dates: start: 20230823, end: 20230823
  5. 1. ENTECAVIR [Concomitant]
     Indication: Hepatitis B
     Dates: start: 1992
  6. ADEMETIONINE [Concomitant]
     Active Substance: ADEMETIONINE
     Dates: start: 20230830, end: 20230924
  7. METOCLOPRAMIDE DIHYDROCHLORIDE [Concomitant]
     Active Substance: METOCLOPRAMIDE DIHYDROCHLORIDE
     Dates: start: 20230830, end: 20231125
  8. ESOMEPRAZOLE [Concomitant]
     Active Substance: ESOMEPRAZOLE
     Dates: start: 20230830, end: 20230903
  9. DEXAMETHASONE SODIUM PHOSPHATE [Concomitant]
     Active Substance: DEXAMETHASONE SODIUM PHOSPHATE
     Dates: start: 20230831, end: 20231123
  10. DEXRAZOXANE [Concomitant]
     Active Substance: DEXRAZOXANE
     Dates: start: 20230831, end: 20230831
  11. APO-FLURBIPROFEN [Concomitant]
     Dates: start: 20230831, end: 20230831
  12. GRANISETRON HYDROCHLORIDE [Concomitant]
     Active Substance: GRANISETRON HYDROCHLORIDE
     Dates: start: 20230831, end: 20230831
  13. PHENOBARBITAL SODIUM [Concomitant]
     Active Substance: PHENOBARBITAL SODIUM
     Dates: start: 20230831, end: 20231123
  14. 3,6-DINICOTINYLMORPHINE [Concomitant]
     Dates: start: 20230831, end: 20230831
  15. MAGNESIUM HYDROXIDE [Concomitant]
     Active Substance: MAGNESIUM HYDROXIDE
     Dates: start: 20230901, end: 20230905
  16. LACTULOSE [Concomitant]
     Active Substance: LACTULOSE
     Dates: start: 20230903, end: 20230903
  17. ACESULFAME POTASSIUM [Concomitant]
     Active Substance: ACESULFAME POTASSIUM
     Dates: start: 20230824, end: 20230903
  18. ACTIFED COMPOUND [Concomitant]
     Dates: start: 20230830, end: 20231127
  19. ADENOSINE [Concomitant]
     Active Substance: ADENOSINE
     Dates: start: 20230902, end: 20231124

REACTIONS (1)
  - Hepatic function abnormal [Recovered/Resolved]

NARRATIVE: CASE EVENT DATE: 20230920
